FAERS Safety Report 11305914 (Version 3)
Quarter: 2015Q3

REPORT INFORMATION
  Report Type: Report from Study
  Country: CA (occurrence: CA)
  Receive Date: 20150723
  Receipt Date: 20150826
  Transmission Date: 20151125
  Serious: Yes (Other)
  Sender: FDA-Public Use
  Company Number: CA-ROCHE-1607032

PATIENT
  Sex: Female
  Weight: 44.04 kg

DRUGS (13)
  1. HYDROCHLOROTHIAZIDE. [Concomitant]
     Active Substance: HYDROCHLOROTHIAZIDE
     Route: 065
     Dates: start: 201003
  2. DEXAMETHASONE. [Concomitant]
     Active Substance: DEXAMETHASONE
     Route: 065
     Dates: start: 201505
  3. DOCETAXEL. [Concomitant]
     Active Substance: DOCETAXEL
     Route: 065
     Dates: start: 201106
  4. AVASTIN [Suspect]
     Active Substance: BEVACIZUMAB
     Indication: HER-2 POSITIVE BREAST CANCER
     Route: 042
     Dates: start: 20150728
  5. ZOPICLONE [Concomitant]
     Active Substance: ZOPICLONE
     Route: 065
     Dates: start: 201503
  6. PERJETA [Suspect]
     Active Substance: PERTUZUMAB
     Indication: HER-2 POSITIVE BREAST CANCER
     Route: 065
     Dates: start: 201006, end: 201106
  7. VALSARTAN. [Concomitant]
     Active Substance: VALSARTAN
     Route: 065
     Dates: start: 201003
  8. ZANTAC [Concomitant]
     Active Substance: RANITIDINE HYDROCHLORIDE
     Route: 065
     Dates: start: 201503
  9. DEXAMETHASONE. [Concomitant]
     Active Substance: DEXAMETHASONE
     Route: 065
     Dates: start: 201503
  10. ACTONEL [Concomitant]
     Active Substance: RISEDRONATE SODIUM
     Route: 065
     Dates: start: 2009
  11. TAMOXIFEN [Concomitant]
     Active Substance: TAMOXIFEN
     Route: 065
     Dates: start: 201106, end: 201406
  12. CARBOPLATIN. [Concomitant]
     Active Substance: CARBOPLATIN
     Route: 065
     Dates: start: 201006, end: 201106
  13. HERCEPTIN [Suspect]
     Active Substance: TRASTUZUMAB
     Indication: HER-2 POSITIVE BREAST CANCER
     Route: 065
     Dates: start: 201006, end: 201106

REACTIONS (17)
  - Balance disorder [Unknown]
  - Fall [Unknown]
  - Insomnia [Unknown]
  - Muscular weakness [Unknown]
  - Abdominal rigidity [Unknown]
  - Weight increased [Not Recovered/Not Resolved]
  - Brain neoplasm [Unknown]
  - Abdominal distension [Unknown]
  - Hemiparesis [Recovering/Resolving]
  - Mobility decreased [Recovering/Resolving]
  - Gastrointestinal haemorrhage [Unknown]
  - Confusional state [Not Recovered/Not Resolved]
  - Haemorrhoidal haemorrhage [Unknown]
  - Mood swings [Recovering/Resolving]
  - Arthropathy [Unknown]
  - Memory impairment [Unknown]
  - Off label use [Unknown]

NARRATIVE: CASE EVENT DATE: 2015
